FAERS Safety Report 5212545-5 (Version None)
Quarter: 2007Q1

REPORT INFORMATION
  Report Type: 
  Country: None (occurrence: None)
  Receive Date: 20070118
  Receipt Date: 20070112
  Transmission Date: 20070707
  Serious: Yes (Other)
  Sender: FDA-Public Use
  Company Number: US-PFIZER INC-2006125139

PATIENT
  Sex: Female
  Weight: 72.6 kg

DRUGS (12)
  1. ZOLOFT [Suspect]
     Indication: SYNCOPE VASOVAGAL
  2. CHANTIX [Suspect]
     Indication: SMOKING CESSATION THERAPY
     Route: 048
     Dates: start: 20060930, end: 20061008
  3. XANAX [Suspect]
     Indication: INSOMNIA
  4. PLAVIX [Concomitant]
  5. TOPROL-XL [Concomitant]
  6. VERAPAMIL [Concomitant]
  7. HYDROCHLOROTHIAZIDE [Concomitant]
  8. VITAMINS [Concomitant]
  9. POTASSIUM ACETATE [Concomitant]
  10. RESTORIL [Concomitant]
     Indication: INSOMNIA
  11. ZETIA [Concomitant]
  12. REQUIP [Concomitant]

REACTIONS (6)
  - CONTUSION [None]
  - DRUG EFFECT DECREASED [None]
  - FALL [None]
  - INSOMNIA [None]
  - JOINT INJURY [None]
  - SYNCOPE [None]
